FAERS Safety Report 6708849-7 (Version None)
Quarter: 2010Q2

REPORT INFORMATION
  Report Type: 
  Country: None (occurrence: None)
  Receive Date: 20100503
  Receipt Date: 20100503
  Transmission Date: 20101027
  Serious: Yes (Hospitalization, Disabling, Other)
  Sender: FDA-Public Use
  Company Number: None

PATIENT
  Age: 62 Year
  Sex: Female
  Weight: 51.7101 kg

DRUGS (1)
  1. FOSAMAX [Suspect]
     Indication: OSTEOPOROSIS
     Dosage: 70 MG 1 TABLET ONCE/WEEKLY BY MOUTH
     Route: 048
     Dates: start: 19970901, end: 20090701

REACTIONS (11)
  - ARTHRALGIA [None]
  - BURSITIS [None]
  - FEMUR FRACTURE [None]
  - FOOT FRACTURE [None]
  - IMPAIRED HEALING [None]
  - NEURALGIA [None]
  - PATHOLOGICAL FRACTURE [None]
  - PUBIS FRACTURE [None]
  - RIB FRACTURE [None]
  - SPINAL FRACTURE [None]
  - STERNAL FRACTURE [None]
